FAERS Safety Report 8270873-3 (Version None)
Quarter: 2012Q2

REPORT INFORMATION
  Report Type: 
  Country: None (occurrence: None)
  Receive Date: 20120410
  Receipt Date: 20120410
  Transmission Date: 20120825
  Serious: Yes (Hospitalization)
  Sender: FDA-Public Use
  Company Number: None

PATIENT
  Age: 51 Year
  Sex: Female
  Weight: 56.1 kg

DRUGS (2)
  1. LEVOFLOXACIN [Suspect]
     Dosage: 500MG
     Route: 042
  2. LEVOFLOXACIN [Concomitant]

REACTIONS (1)
  - PRURITUS [None]
